FAERS Safety Report 8874702 (Version 1)
Quarter: 2012Q4

REPORT INFORMATION
  Report Type: 
  Country: US (occurrence: US)
  Receive Date: 20121026
  Receipt Date: 20121026
  Transmission Date: 20130627
  Serious: No
  Sender: FDA-Public Use
  Company Number: US-AMGEN-USASP2012043142

PATIENT
  Sex: Female

DRUGS (15)
  1. ENBREL [Suspect]
     Indication: PRODUCT USED FOR UNKNOWN INDICATION
     Dosage: 50 mg, qwk
     Route: 058
  2. DARVOCET                           /00220901/ [Concomitant]
     Dosage: UNK
  3. FOSAMAX PLUS D [Concomitant]
     Dosage: UNK (70-5600)
  4. PROTONIX [Concomitant]
     Dosage: 40 mg, UNK
  5. AMLODIPINE [Concomitant]
     Dosage: 5 mg, UNK
  6. METHOTREXATE [Concomitant]
     Dosage: 2.5 mg, UNK
  7. IPRATROPIUM [Concomitant]
     Dosage: 0.02 UNK, UNK (0.02 %INH)
  8. SIMVASTATIN [Concomitant]
     Dosage: 40 mg, UNK
  9. ALBUTEROL                          /00139501/ [Concomitant]
     Dosage: 0.083 %, UNK
  10. VENTOLIN HFA [Concomitant]
     Dosage: UNK
  11. LEXAPRO [Concomitant]
     Dosage: 20 mg, UNK
  12. FISH OIL [Concomitant]
     Dosage: UNK
  13. MULTIVITAMIN                       /00097801/ [Concomitant]
     Dosage: UNK
  14. CALCIUM +D                         /00188401/ [Concomitant]
     Dosage: UNK
  15. FOLIC ACID [Concomitant]
     Dosage: UNK

REACTIONS (1)
  - Ligament rupture [Unknown]
